FAERS Safety Report 6661385-9 (Version None)
Quarter: 2010Q1

REPORT INFORMATION
  Report Type: 
  Country: None (occurrence: None)
  Receive Date: 20100331
  Receipt Date: 20100325
  Transmission Date: 20100710
  Serious: Yes (Hospitalization)
  Sender: FDA-Public Use
  Company Number: PHHO2010IT04728

PATIENT
  Sex: Female
  Weight: 64 kg

DRUGS (2)
  1. CGS 20267 T30748+TAB [Suspect]
     Indication: BREAST CANCER
     Dosage: 2.5 MG, QD
     Route: 048
     Dates: start: 20060620, end: 20100323
  2. LORANS [Concomitant]

REACTIONS (2)
  - CEREBRAL ISCHAEMIA [None]
  - HEMIPARESIS [None]
